FAERS Safety Report 4456041-1 (Version None)
Quarter: 2004Q3

REPORT INFORMATION
  Report Type: 
  Country: None (occurrence: None)
  Receive Date: 20040831
  Receipt Date: 20040722
  Transmission Date: 20050211
  Serious: No
  Sender: FDA-Public Use
  Company Number: FABR-10689

PATIENT
  Age: 66 Year
  Sex: Male
  Weight: 92.4 kg

DRUGS (13)
  1. FABRAZYME [Suspect]
     Indication: FABRY'S DISEASE
     Dosage: 105 MG Q2WKS IV
     Route: 042
     Dates: start: 20040205
  2. DUONEB [Concomitant]
  3. ADVAIR DISKUS 100/50 [Concomitant]
  4. LISINOPRIL [Concomitant]
  5. ASPIRIN [Concomitant]
  6. DIOVAN [Concomitant]
  7. VITAMIN E [Concomitant]
  8. GLYBURIDE [Concomitant]
  9. AVANDIA [Concomitant]
  10. HYDROCHLOROTHIAZIDE [Concomitant]
  11. TOPROL-XL [Concomitant]
  12. SPIRONOLACTONE [Concomitant]
  13. ZOCOR [Concomitant]

REACTIONS (1)
  - FEELING JITTERY [None]
